FAERS Safety Report 5375507-3 (Version None)
Quarter: 2007Q2

REPORT INFORMATION
  Report Type: 
  Country: None (occurrence: None)
  Receive Date: 20070629
  Receipt Date: 20070620
  Transmission Date: 20071010
  Serious: Yes (Life-Threatening, Hospitalization)
  Sender: FDA-Public Use
  Company Number: JP-PFIZER INC-2007048953

PATIENT
  Sex: Female

DRUGS (10)
  1. NORVASC [Suspect]
     Indication: HYPERTENSION
     Dosage: DAILY DOSE:5MG
     Route: 048
  2. SYMMETREL [Suspect]
     Indication: PARKINSONISM
     Dosage: DAILY DOSE:150MG
     Route: 048
  3. GASTER [Suspect]
     Indication: GASTRIC ULCER
     Dosage: DAILY DOSE:20MG
     Route: 048
  4. PLETAL [Suspect]
     Dosage: DAILY DOSE:200MG
     Route: 048
  5. DIOVAN [Concomitant]
     Route: 048
     Dates: start: 20030822, end: 20070610
  6. LIPITOR [Concomitant]
     Indication: HYPERLIPIDAEMIA
     Route: 048
  7. CABASER [Concomitant]
     Route: 048
  8. MADOPAR [Concomitant]
     Route: 048
  9. FERROMIA [Concomitant]
     Indication: IRON DEFICIENCY ANAEMIA
     Route: 048
     Dates: start: 20070328, end: 20070610
  10. WARFARIN SODIUM [Concomitant]
     Indication: DEEP VEIN THROMBOSIS
     Route: 048
     Dates: start: 20030822

REACTIONS (2)
  - ELECTROCARDIOGRAM QT PROLONGED [None]
  - TORSADE DE POINTES [None]
